FAERS Safety Report 23219124 (Version 1)
Quarter: 2023Q4

REPORT INFORMATION
  Report Type: Spontaneous
  Country: US (occurrence: None)
  Receive Date: 20231121
  Receipt Date: 20231121
  Transmission Date: 20240109
  Serious: Yes (Other)
  Sender: FDA-Public Use
  Company Number: None

PATIENT
  Age: 73 Year
  Sex: Female
  Weight: 76.66 kg

DRUGS (13)
  1. OZEMPIC [Suspect]
     Active Substance: SEMAGLUTIDE
     Indication: Diabetes mellitus
     Dosage: 4.MONTH  1X/WK SQ?
     Route: 058
     Dates: start: 20230731, end: 20231010
  2. ROSUVASTATIN [Concomitant]
     Active Substance: ROSUVASTATIN
  3. EZETIMIBE [Concomitant]
     Active Substance: EZETIMIBE
  4. ALLOPURINOL [Concomitant]
     Active Substance: ALLOPURINOL
  5. CETOLOPRAM [Concomitant]
  6. NEBIVOLOL [Concomitant]
     Active Substance: NEBIVOLOL
  7. OLMESARTEN [Concomitant]
  8. PANTOPRAZOLE [Concomitant]
     Active Substance: PANTOPRAZOLE
  9. QURIRIA [Concomitant]
  10. SPIRONOLACTONE [Concomitant]
     Active Substance: SPIRONOLACTONE
  11. METFORMIN [Concomitant]
     Active Substance: METFORMIN HYDROCHLORIDE
  12. METAMUCIL [Concomitant]
     Active Substance: PLANTAGO SEED
  13. VITAMIN D [Concomitant]
     Active Substance: VITAMIN D NOS

REACTIONS (3)
  - Rash [None]
  - Urticaria [None]
  - Urticaria [None]

NARRATIVE: CASE EVENT DATE: 20230920
